FAERS Safety Report 19026784 (Version 2)
Quarter: 2021Q1

REPORT INFORMATION
  Report Type: Spontaneous
  Country: CA (occurrence: CA)
  Receive Date: 20210318
  Receipt Date: 20210324
  Transmission Date: 20210420
  Serious: Yes (Other)
  Sender: FDA-Public Use
  Company Number: CA-JNJFOC-20210324286

PATIENT
  Age: 43 Year
  Sex: Female

DRUGS (2)
  1. REMICADE [Suspect]
     Active Substance: INFLIXIMAB
     Indication: ANKYLOSING SPONDYLITIS
     Route: 042
  2. METHOTREXATE. [Concomitant]
     Active Substance: METHOTREXATE
     Route: 058

REACTIONS (15)
  - Eye pain [Unknown]
  - Intentional product use issue [Unknown]
  - Malaise [Unknown]
  - Asthenia [Unknown]
  - Ocular hyperaemia [Unknown]
  - Condition aggravated [Unknown]
  - Peripheral arterial occlusive disease [Unknown]
  - Foreign body in eye [Unknown]
  - Eye irritation [Unknown]
  - Fatigue [Unknown]
  - Diarrhoea [Unknown]
  - Headache [Unknown]
  - Off label use [Unknown]
  - Weight increased [Unknown]
  - Therapeutic response shortened [Unknown]
